FAERS Safety Report 9741762 (Version 2)
Quarter: 2013Q4

REPORT INFORMATION
  Report Type: Spontaneous
  Country: CA (occurrence: CA)
  Receive Date: 20131210
  Receipt Date: 20131219
  Transmission Date: 20140711
  Serious: Yes (Other)
  Sender: FDA-Public Use
  Company Number: CA-ROCHE-1315762

PATIENT
  Age: 38 Year
  Sex: Female

DRUGS (2)
  1. XOLAIR [Suspect]
     Indication: ASTHMA
     Route: 058
     Dates: start: 20060908
  2. INFLUENZA VACCINE [Concomitant]
     Route: 065
     Dates: start: 20111109

REACTIONS (12)
  - Glaucoma [Unknown]
  - Pyrexia [Unknown]
  - Nasal congestion [Unknown]
  - Productive cough [Unknown]
  - Rhinorrhoea [Unknown]
  - Sneezing [Unknown]
  - Lacrimation increased [Unknown]
  - Respiratory tract congestion [Unknown]
  - Sinusitis [Unknown]
  - Nasopharyngitis [Unknown]
  - Cough [Unknown]
  - Nasal dryness [Unknown]
